FAERS Safety Report 9140529 (Version 1)
Quarter: 2013Q1

REPORT INFORMATION
  Report Type: Spontaneous
  Country: GB (occurrence: GB)
  Receive Date: 20130305
  Receipt Date: 20130305
  Transmission Date: 20140127
  Serious: Yes (Disabling)
  Sender: FDA-Public Use
  Company Number: GB-TEVA-389060ISR

PATIENT
  Age: 29 Year
  Sex: Female

DRUGS (3)
  1. OFLOXACIN [Suspect]
     Route: 048
     Dates: start: 20130201, end: 20130204
  2. CITALOPRAM [Concomitant]
     Dates: start: 20121121, end: 20121219
  3. CITALOPRAM [Concomitant]
     Dates: start: 20130129

REACTIONS (5)
  - Hypoaesthesia [Unknown]
  - Nausea [Unknown]
  - Panic attack [Unknown]
  - Insomnia [Unknown]
  - Hallucinations, mixed [Recovered/Resolved]
